FAERS Safety Report 7209950-4 (Version None)
Quarter: 2011Q1

REPORT INFORMATION
  Report Type: 
  Country: None (occurrence: None)
  Receive Date: 20110105
  Receipt Date: 20101227
  Transmission Date: 20110831
  Serious: No
  Sender: FDA-Public Use
  Company Number: US-BIOGENIDEC-2010BI042479

PATIENT
  Age: 35 Year
  Sex: Male

DRUGS (1)
  1. TYSABRI [Suspect]
     Indication: MULTIPLE SCLEROSIS
     Route: 042
     Dates: start: 20101122

REACTIONS (7)
  - GAIT DISTURBANCE [None]
  - SOMNOLENCE [None]
  - FATIGUE [None]
  - NASOPHARYNGITIS [None]
  - HANGOVER [None]
  - HEADACHE [None]
  - SLEEP TALKING [None]
